FAERS Safety Report 4452959-4 (Version None)
Quarter: 2004Q3

REPORT INFORMATION
  Report Type: 
  Country: None (occurrence: None)
  Receive Date: 20040916
  Receipt Date: 20040909
  Transmission Date: 20050211
  Serious: Yes (Hospitalization)
  Sender: FDA-Public Use
  Company Number: STA-AE-04-030

PATIENT
  Age: 81 Year
  Sex: Male

DRUGS (2)
  1. ACYCLOVIR [Suspect]
     Indication: HERPES SIMPLEX
  2. DILTIAZEM [Suspect]
     Indication: HYPERTENSION
     Dosage: 120 PER DAY, ORAL
     Route: 048

REACTIONS (2)
  - LEUKOPENIA [None]
  - THROMBOCYTOPENIA [None]
